FAERS Safety Report 14971780 (Version 1)
Quarter: 2018Q2

REPORT INFORMATION
  Report Type: Report from Study
  Country: BR (occurrence: BR)
  Receive Date: 20180605
  Receipt Date: 20180605
  Transmission Date: 20180711
  Serious: Yes (Other)
  Sender: FDA-Public Use
  Company Number: BR-UCBSA-2018023499

PATIENT
  Age: 35 Year
  Sex: Male
  Weight: 56 kg

DRUGS (5)
  1. PANTOPRAZOLE [Concomitant]
     Active Substance: PANTOPRAZOLE
     Indication: SPONDYLITIS
     Dosage: 40 MG, UNK
     Route: 048
     Dates: start: 20180316
  2. CERTOLIZUMAB PEGOL [Suspect]
     Active Substance: CERTOLIZUMAB PEGOL
     Indication: ANKYLOSING SPONDYLITIS
     Dosage: 400 MG, ONE TIME DOSE
     Dates: start: 20180515, end: 20180515
  3. ENDOFOLIN [Concomitant]
     Active Substance: FOLIC ACID
     Indication: SPONDYLITIS
     Dosage: 5 MG, UNK
     Route: 048
     Dates: start: 20180316
  4. METHOTREXATE. [Concomitant]
     Active Substance: METHOTREXATE
     Indication: SPONDYLITIS
     Dosage: 25 MG, UNK
     Route: 058
     Dates: start: 2013
  5. SUCCINYLCHOLINE CHLORIDE. [Concomitant]
     Active Substance: SUCCINYLCHOLINE CHLORIDE
     Indication: SPONDYLITIS
     Dosage: UNK
     Route: 048
     Dates: start: 20180316

REACTIONS (4)
  - Nausea [Recovering/Resolving]
  - Oedema peripheral [Recovered/Resolved]
  - Respiratory failure [Recovered/Resolved]
  - Eye oedema [Recovered/Resolved]

NARRATIVE: CASE EVENT DATE: 20180515
